FAERS Safety Report 7037242-5 (Version None)
Quarter: 2010Q4

REPORT INFORMATION
  Report Type: 
  Country: None (occurrence: None)
  Receive Date: 20101011
  Receipt Date: 20101005
  Transmission Date: 20110411
  Serious: Yes (Other)
  Sender: FDA-Public Use
  Company Number: BR-ROCHE-731365

PATIENT
  Sex: Female
  Weight: 69 kg

DRUGS (10)
  1. RIVOTRIL [Suspect]
     Indication: PRODUCT USED FOR UNKNOWN INDICATION
     Dosage: DOSE: 0.25 MG
     Route: 065
     Dates: start: 20070227
  2. UNSPECIFIED MEDICATION [Interacting]
     Route: 065
  3. CITALOPRAM HYDROBROMIDE [Concomitant]
     Dosage: FREQUENCY: AT NIGHT
  4. SEROQUEL [Concomitant]
     Dosage: DOSE: 0.25 MG; FREQUENCY: AT NIGHT
  5. SIMVASTATIN [Concomitant]
     Indication: ILL-DEFINED DISORDER
     Dosage: DOSE: 20 MG; FREQUENCY: 1 TAB IN MORNING
  6. CARVEDILOL [Concomitant]
  7. HYDROCHLOROTHIAZIDE [Concomitant]
  8. OMEPRAZOLE [Concomitant]
     Indication: GASTRIC DISORDER
  9. ASPIRIN [Concomitant]
  10. CLORANA [Concomitant]

REACTIONS (13)
  - ACTIVITIES OF DAILY LIVING IMPAIRED [None]
  - ANGINA PECTORIS [None]
  - ANGIOPATHY [None]
  - ANHEDONIA [None]
  - BLOOD PRESSURE INCREASED [None]
  - CARDIAC DISORDER [None]
  - DIARRHOEA [None]
  - DIZZINESS [None]
  - DRUG INTERACTION [None]
  - FEELING ABNORMAL [None]
  - PAIN IN EXTREMITY [None]
  - PALPITATIONS [None]
  - RENAL DISORDER [None]
